FAERS Safety Report 19877028 (Version 1)
Quarter: 2021Q3

REPORT INFORMATION
  Report Type: Spontaneous
  Country: CA (occurrence: CA)
  Receive Date: 20210923
  Receipt Date: 20210923
  Transmission Date: 20211014
  Serious: Yes (Life-Threatening, Hospitalization)
  Sender: FDA-Public Use
  Company Number: CA-TEVA-2021-CA-1955805

PATIENT
  Age: 16 Year
  Sex: Female
  Weight: 72 kg

DRUGS (20)
  1. CLARITHROMYCIN. [Concomitant]
     Active Substance: CLARITHROMYCIN
  2. ENOXAPARIN [Concomitant]
     Active Substance: ENOXAPARIN
  3. ONDANSETRON [Concomitant]
     Active Substance: ONDANSETRON
  4. ZINECARD [Concomitant]
     Active Substance: DEXRAZOXANE HYDROCHLORIDE
  5. VINCRISTINE SULFATE. [Suspect]
     Active Substance: VINCRISTINE SULFATE
     Indication: EWING^S SARCOMA
     Route: 042
  6. POLYETHYLENE GLYCOL [Concomitant]
     Active Substance: POLYETHYLENE GLYCOLS
  7. PHYTONADIONE. [Concomitant]
     Active Substance: PHYTONADIONE
  8. DOXORUBICIN HYDROCHLORIDE INJECTION [Suspect]
     Active Substance: DOXORUBICIN HYDROCHLORIDE
     Indication: EWING^S SARCOMA
     Route: 042
  9. ACETAMINOPHEN. [Concomitant]
     Active Substance: ACETAMINOPHEN
  10. CEFTRIAXONE FOR INJECTION USP [Concomitant]
     Active Substance: CEFTRIAXONE
  11. DEXAMETHASONE. [Concomitant]
     Active Substance: DEXAMETHASONE
  12. NORETHINDRONE. [Concomitant]
     Active Substance: NORETHINDRONE
  13. CALCIUM [Concomitant]
     Active Substance: CALCIUM
  14. HEPARIN [Concomitant]
     Active Substance: HEPARIN SODIUM
     Route: 042
  15. MELATONIN [Concomitant]
     Active Substance: MELATONIN
  16. MORPHINE [Concomitant]
     Active Substance: MORPHINE
  17. ALLOPURINOL. [Concomitant]
     Active Substance: ALLOPURINOL
  18. CYCLOPHOSPHAMIDE. [Suspect]
     Active Substance: CYCLOPHOSPHAMIDE
     Indication: EWING^S SARCOMA
     Route: 042
  19. MOMETASONE FUROATE. [Concomitant]
     Active Substance: MOMETASONE FUROATE
  20. OLANZAPINE. [Concomitant]
     Active Substance: OLANZAPINE

REACTIONS (2)
  - Febrile neutropenia [Recovered/Resolved]
  - Aplastic anaemia [Recovered/Resolved]
